FAERS Safety Report 14323412 (Version 1)
Quarter: 2017Q4

REPORT INFORMATION
  Report Type: Other
  Country: DE (occurrence: DE)
  Receive Date: 20171226
  Receipt Date: 20171226
  Transmission Date: 20180321
  Serious: Yes (Death)
  Sender: FDA-Public Use
  Company Number: DE-AJANTA PHARMA USA INC.-2037720

PATIENT
  Age: 41 Year
  Sex: Male

DRUGS (3)
  1. TRIMIPRAMINE MALEATE. [Suspect]
     Active Substance: TRIMIPRAMINE MALEATE
  2. 5F-ADB [Suspect]
     Active Substance: 5-FLUORO-ADB, (+/-)-
  3. OLANZAPINE (ANDA 204320) [Suspect]
     Active Substance: OLANZAPINE
     Indication: PRODUCT USED FOR UNKNOWN INDICATION

REACTIONS (4)
  - Aspiration [Fatal]
  - Coma [Fatal]
  - Drug interaction [Fatal]
  - Toxicity to various agents [Fatal]

NARRATIVE: CASE EVENT DATE: 201602
